FAERS Safety Report 4422415-8 (Version None)
Quarter: 2004Q3

REPORT INFORMATION
  Report Type: 
  Country: None (occurrence: None)
  Receive Date: 20040805
  Receipt Date: 20040723
  Transmission Date: 20050211
  Serious: Yes (Hospitalization, Other)
  Sender: FDA-Public Use
  Company Number: 2004050406

PATIENT
  Age: 55 Year
  Sex: Male
  Weight: 117.9352 kg

DRUGS (11)
  1. LIPITOR [Suspect]
     Indication: BLOOD CHOLESTEROL INCREASED
     Dosage: 10 MG (10 MG 1 IN 1 D) ORAL
     Route: 048
     Dates: start: 19980101, end: 20040408
  2. ZOLOFT [Suspect]
     Indication: DEPRESSION
     Dosage: ORAL
     Route: 048
  3. METHYLPREDNISOLONE SODIUM SUCCINATE [Suspect]
     Indication: EMPHYSEMA
  4. ROSIGLITAZONE MALEATE [Suspect]
     Indication: DIABETES MELLITUS
     Dates: end: 20040701
  5. THEOPHYLLINE [Concomitant]
  6. ALPRAZOLAM [Concomitant]
  7. DILTIAZEM HYDROCHLORIDE [Concomitant]
  8. FUROSEMIDE [Concomitant]
  9. PIRBUTEROL ACETATE (PIRBUTEROL ACETATE) [Concomitant]
  10. IPRATROPIUM BROMIDE [Concomitant]
  11. SALBUTAMOL (SALBUTAMOL) [Concomitant]

REACTIONS (8)
  - BLOOD CHOLESTEROL INCREASED [None]
  - CONDITION AGGRAVATED [None]
  - DIABETES MELLITUS [None]
  - DRUG EFFECT DECREASED [None]
  - EMPHYSEMA [None]
  - LIVER FUNCTION TEST ABNORMAL [None]
  - UNDERDOSE [None]
  - WEIGHT INCREASED [None]
